FAERS Safety Report 9047039 (Version 1)
Quarter: 2013Q1

REPORT INFORMATION
  Report Type: Spontaneous
  Country: US (occurrence: None)
  Receive Date: 20130129
  Receipt Date: 20130129
  Transmission Date: 20140127
  Serious: Yes (Hospitalization)
  Sender: FDA-Public Use
  Company Number: None

PATIENT
  Sex: Female

DRUGS (7)
  1. AFINITOR [Suspect]
     Indication: BREAST CANCER
     Dosage: DAILY
     Route: 048
     Dates: start: 20121220, end: 20130123
  2. AROMASIN [Concomitant]
  3. LISINOPRIL [Concomitant]
  4. HCTZ [Concomitant]
  5. VERAPAMIL [Concomitant]
  6. DORZOLAMIDE/TIMOLOL [Concomitant]
  7. LATANOPROST [Concomitant]

REACTIONS (9)
  - Sinusitis [None]
  - Asthenia [None]
  - Syncope [None]
  - Blood glucose increased [None]
  - Fluid retention [None]
  - Blood potassium decreased [None]
  - Blood magnesium decreased [None]
  - Blood sodium decreased [None]
  - Rash generalised [None]
